FAERS Safety Report 7570039-6 (Version None)
Quarter: 2011Q2

REPORT INFORMATION
  Report Type: 
  Country: None (occurrence: None)
  Receive Date: 20110620
  Receipt Date: 20110609
  Transmission Date: 20111010
  Serious: Yes (Death, Hospitalization)
  Sender: FDA-Public Use
  Company Number: 2010AC000006

PATIENT
  Age: 64 Year
  Sex: Male

DRUGS (36)
  1. COREG [Concomitant]
  2. AMOXICILLIN [Concomitant]
  3. COMBIVENT [Concomitant]
  4. FUROSEMIDE [Concomitant]
  5. METFORMIN HCL [Concomitant]
  6. INDOMETHACIN [Concomitant]
  7. COLCHICINE [Concomitant]
  8. ALLOPURINOL [Concomitant]
  9. CRESTOR [Concomitant]
  10. POTASSIUM CHLORIDE [Concomitant]
  11. ZETIA [Concomitant]
  12. ZOLPIDEM [Concomitant]
  13. PAXIL [Concomitant]
  14. DIGOXIN [Suspect]
     Indication: CARDIOMYOPATHY
     Dosage: 0.125 MG;QD;PO
     Route: 048
     Dates: start: 20041020, end: 20080401
  15. CAPTOPRIL [Concomitant]
  16. PREDNISONE [Concomitant]
  17. SOLU-MEDROL [Concomitant]
  18. XANAX [Concomitant]
  19. ALDATONE [Concomitant]
  20. AMBIEN [Concomitant]
  21. ASPIRIN [Concomitant]
  22. ZESTRIL [Concomitant]
  23. MILIRONE [Concomitant]
  24. DIGOXIN [Suspect]
     Indication: CARDIOMYOPATHY
     Dosage: 0.25 MG;QD;PO
     Route: 048
  25. COUMADIN [Concomitant]
  26. LEVAQUIN [Concomitant]
  27. WARFARIN SODIUM [Concomitant]
  28. ZITHROMAX [Concomitant]
  29. COMBIVENT [Concomitant]
  30. ALPRAZOLAM [Concomitant]
  31. DEMADEX [Concomitant]
  32. RESTORIL [Concomitant]
  33. LASIX [Concomitant]
  34. ALDACTONE [Concomitant]
  35. ROCEPHIN [Concomitant]
  36. AMIODARONE HCL [Concomitant]

REACTIONS (21)
  - MULTIPLE INJURIES [None]
  - MYOCARDIAL ISCHAEMIA [None]
  - ELECTROCARDIOGRAM QRS COMPLEX PROLONGED [None]
  - MITRAL VALVE INCOMPETENCE [None]
  - CARDIOGENIC SHOCK [None]
  - CARDIAC FAILURE CONGESTIVE [None]
  - ELECTROCARDIOGRAM REPOLARISATION ABNORMALITY [None]
  - CARDIOMEGALY [None]
  - HEART RATE DECREASED [None]
  - PAIN [None]
  - UPPER RESPIRATORY TRACT INFECTION [None]
  - ATRIAL TACHYCARDIA [None]
  - ECONOMIC PROBLEM [None]
  - BRONCHITIS [None]
  - BUNDLE BRANCH BLOCK LEFT [None]
  - FAMILY STRESS [None]
  - LEFT VENTRICULAR HYPERTROPHY [None]
  - CONDITION AGGRAVATED [None]
  - CARDIOACTIVE DRUG LEVEL DECREASED [None]
  - ATRIAL FLUTTER [None]
  - PNEUMONIA [None]
